FAERS Safety Report 7702930-1 (Version None)
Quarter: 2011Q3

REPORT INFORMATION
  Report Type: 
  Country: None (occurrence: None)
  Receive Date: 20110823
  Receipt Date: 20110816
  Transmission Date: 20111222
  Serious: Yes (Death, Other)
  Sender: FDA-Public Use
  Company Number: PHHY2011FR73774

PATIENT
  Age: 19 Year
  Sex: Female

DRUGS (10)
  1. ANTI-THYMOCYTE GLOBULIN RABBIT NOS [Concomitant]
     Dosage: UNK UKN, UNK
  2. COLOMYCIN [Concomitant]
     Dosage: UNK UKN, UNK
  3. MYCOPHENOLATE MOFETIL [Suspect]
     Indication: LUNG TRANSPLANT
     Dosage: 2 G PER DAY
     Route: 048
  4. PREDNISOLONE [Concomitant]
     Dosage: 1 MG/KG/DAY
  5. PREDNISOLONE [Concomitant]
     Dosage: 5-10 MG/DAY
  6. METHYLPREDNISOLONE [Concomitant]
     Dosage: 500 MG, UNK
  7. ANTIBIOTICS [Concomitant]
     Dosage: UNK UKN, UNK
  8. CYCLOSPORINE [Suspect]
     Indication: LUNG TRANSPLANT
     Dosage: UNK
     Route: 042
  9. METHYLPREDNISOLONE [Concomitant]
     Dosage: 500 MG, UNK
  10. TOBRAMYCIN [Concomitant]
     Dosage: UNK UKN, UNK

REACTIONS (3)
  - METASTASES TO CENTRAL NERVOUS SYSTEM [None]
  - EPSTEIN-BARR VIRUS ASSOCIATED LYMPHOPROLIFERATIVE DISORDER [None]
  - BURKHOLDERIA CEPACIA COMPLEX INFECTION [None]
